FAERS Safety Report 11678382 (Version 1)
Quarter: 2015Q4

REPORT INFORMATION
  Report Type: Spontaneous
  Country: IT (occurrence: IT)
  Receive Date: 20151028
  Receipt Date: 20151028
  Transmission Date: 20160304
  Serious: Yes (Other)
  Sender: FDA-Public Use
  Company Number: PHHY2015IT137206

PATIENT
  Age: 56 Year
  Sex: Female

DRUGS (1)
  1. METOPROLOL [Suspect]
     Active Substance: METOPROLOL
     Indication: HYPERTENSION
     Route: 048
     Dates: start: 201302

REACTIONS (8)
  - Disturbance in attention [Unknown]
  - Arthralgia [Unknown]
  - Sneezing [Unknown]
  - Dry mouth [Unknown]
  - Headache [Unknown]
  - Thirst [Unknown]
  - Activities of daily living impaired [Unknown]
  - Dizziness [Unknown]
